FAERS Safety Report 8431423-1 (Version None)
Quarter: 2012Q2

REPORT INFORMATION
  Report Type: 
  Country: None (occurrence: None)
  Receive Date: 20120613
  Receipt Date: 20120604
  Transmission Date: 20120825
  Serious: Yes (Other)
  Sender: FDA-Public Use
  Company Number: JP-VERTEX PHARMACEUTICALS INC.-AE-2012-004902

PATIENT
  Age: 65 Year
  Sex: Female

DRUGS (8)
  1. RIBAVIRIN [Concomitant]
     Indication: HEPATITIS C
     Route: 048
     Dates: start: 20120223, end: 20120410
  2. RIBAVIRIN [Concomitant]
     Route: 048
     Dates: start: 20120516
  3. PEGINTERFERON ALFA-2B [Concomitant]
     Route: 051
     Dates: start: 20120404, end: 20120424
  4. PEGINTERFERON ALFA-2B [Concomitant]
     Route: 051
     Dates: start: 20120516
  5. TELAVIC (TELAPREVIR) [Suspect]
     Indication: HEPATITIS C
     Route: 048
     Dates: start: 20120223, end: 20120424
  6. TELAVIC (TELAPREVIR) [Suspect]
     Route: 048
     Dates: start: 20120516
  7. PEGINTERFERON ALFA-2B [Concomitant]
     Indication: HEPATITIS C
     Route: 051
     Dates: start: 20120223, end: 20120404
  8. RIBAVIRIN [Concomitant]
     Route: 048
     Dates: start: 20120405, end: 20120424

REACTIONS (3)
  - HAEMOGLOBIN DECREASED [None]
  - ANAEMIA [None]
  - RETINOPATHY [None]
